FAERS Safety Report 9491408 (Version 2)
Quarter: 2013Q1

REPORT INFORMATION
  Report Type: Not Available
  Country: US (occurrence: US)
  Receive Date: 20120619
  Receipt Date: 20120619
  Transmission Date: 20140127
  Serious: Yes (Hospitalization)
  Sender: FDA-Public Use
  Company Number: US-LUNDBECK-DKLU1061545

PATIENT
  Age: 5 None
  Sex: Female
  Weight: 18 kg

DRUGS (4)
  1. CLOBAZAM [Suspect]
     Route: 048
     Dates: start: 20080905
  2. CLOBAZAM [Suspect]
  3. DEPAKENE [Concomitant]
     Indication: CONVULSION
     Route: 048
     Dates: start: 200704
  4. KEPPRA [Concomitant]
     Indication: CONVULSION
     Dates: start: 20071016

REACTIONS (1)
  - Convulsion [Recovered/Resolved]
